FAERS Safety Report 5685243-1 (Version None)
Quarter: 2008Q1

REPORT INFORMATION
  Report Type: 
  Country: None (occurrence: None)
  Receive Date: 20080328
  Receipt Date: 20080319
  Transmission Date: 20080703
  Serious: Yes (Other)
  Sender: FDA-Public Use
  Company Number: FR-PFIZER INC-2008006976

PATIENT
  Sex: Female
  Weight: 50 kg

DRUGS (4)
  1. CHAMPIX [Suspect]
     Indication: SMOKING CESSATION THERAPY
     Route: 048
     Dates: start: 20070217, end: 20070307
  2. AMITRIPTYLINE HYDROCHLORIDE [Concomitant]
     Route: 048
  3. PREGABALIN [Concomitant]
     Route: 048
  4. ACETAMINOPHEN [Concomitant]
     Route: 048

REACTIONS (5)
  - ANOREXIA [None]
  - ANTINUCLEAR ANTIBODY POSITIVE [None]
  - CONJUNCTIVAL VASCULAR DISORDER [None]
  - ERYTHEMA [None]
  - JAUNDICE [None]
